FAERS Safety Report 14676014 (Version 1)
Quarter: 2018Q1

REPORT INFORMATION
  Report Type: Spontaneous
  Country: AR (occurrence: AR)
  Receive Date: 20180323
  Receipt Date: 20180323
  Transmission Date: 20180509
  Serious: Yes (Other)
  Sender: FDA-Public Use
  Company Number: AR-ABBVIE-18P-007-2298932-00

PATIENT
  Sex: Female

DRUGS (1)
  1. VENCLEXTA [Suspect]
     Active Substance: VENETOCLAX
     Indication: PRODUCT USED FOR UNKNOWN INDICATION
     Route: 048
     Dates: start: 201706

REACTIONS (8)
  - Ageusia [Unknown]
  - Weight increased [Unknown]
  - Swelling [Unknown]
  - Skin lesion [Unknown]
  - Lymphoma [Unknown]
  - Anosmia [Unknown]
  - Hyperglycaemia [Unknown]
  - Cataract [Unknown]

NARRATIVE: CASE EVENT DATE: 201706
